FAERS Safety Report 16221862 (Version 1)
Quarter: 2019Q2

REPORT INFORMATION
  Report Type: Report from Study
  Country: US (occurrence: US)
  Receive Date: 20190422
  Receipt Date: 20190422
  Transmission Date: 20190711
  Serious: Yes (Other)
  Sender: FDA-Public Use
  Company Number: US-SA-2019SA104447

PATIENT
  Age: 62 Year
  Sex: Male

DRUGS (1)
  1. INSULIN GLARGINE [Suspect]
     Active Substance: INSULIN GLARGINE
     Indication: TYPE 2 DIABETES MELLITUS
     Dosage: 20 U, BID

REACTIONS (8)
  - Joint injury [Unknown]
  - Liver disorder [Unknown]
  - Intervertebral disc disorder [Unknown]
  - Visual impairment [Unknown]
  - Cardiac failure [Unknown]
  - Inappropriate schedule of product administration [Unknown]
  - Chronic hepatitis B [Unknown]
  - Coronary artery disease [Unknown]
